FAERS Safety Report 7516475-5 (Version None)
Quarter: 2011Q2

REPORT INFORMATION
  Report Type: 
  Country: None (occurrence: None)
  Receive Date: 20110601
  Receipt Date: 20110517
  Transmission Date: 20111010
  Serious: Yes (Hospitalization)
  Sender: FDA-Public Use
  Company Number: A0878754A

PATIENT
  Age: 43 Year
  Sex: Male
  Weight: 124.5 kg

DRUGS (10)
  1. ZESTRIL [Concomitant]
  2. CLONAZEPAM [Concomitant]
  3. AVANDAMET [Suspect]
     Route: 048
     Dates: start: 20030901, end: 20060301
  4. AMARYL [Concomitant]
  5. NEURONTIN [Concomitant]
  6. AVANDIA [Suspect]
     Route: 048
     Dates: start: 20030901, end: 20060301
  7. AVAPRO [Concomitant]
  8. LIPITOR [Concomitant]
  9. WELLBUTRIN SR [Concomitant]
  10. SKELAXIN [Concomitant]

REACTIONS (4)
  - MYOCARDIAL INFARCTION [None]
  - FLUID RETENTION [None]
  - CARDIAC ARREST [None]
  - FLUID OVERLOAD [None]
